FAERS Safety Report 6006804-6 (Version None)
Quarter: 2008Q4

REPORT INFORMATION
  Report Type: 
  Country: None (occurrence: None)
  Receive Date: 20081217
  Receipt Date: 20080421
  Transmission Date: 20090506
  Serious: No
  Sender: FDA-Public Use
  Company Number: US-ASTRAZENECA-2006UW05509

PATIENT
  Age: 81 Year
  Sex: Female
  Weight: 52.3 kg

DRUGS (4)
  1. CRESTOR [Suspect]
     Indication: BLOOD CHOLESTEROL INCREASED
     Route: 048
  2. ZETIA [Concomitant]
  3. SYNTHROID [Concomitant]
  4. QUININE [Concomitant]

REACTIONS (2)
  - FLATULENCE [None]
  - MYALGIA [None]
